FAERS Safety Report 9015493 (Version 1)
Quarter: 2013Q1

REPORT INFORMATION
  Report Type: Spontaneous
  Country: ES (occurrence: None)
  Receive Date: 20130103
  Receipt Date: 20130103
  Transmission Date: 20140127
  Serious: Yes (Other)
  Sender: FDA-Public Use
  Company Number: ENTC2012-0588

PATIENT
  Age: 53 Year
  Sex: Male

DRUGS (6)
  1. STALEVO [Suspect]
     Indication: PARKINSON^S DISEASE
     Route: 048
  2. OMEPRAZOLE [Concomitant]
  3. FUROSEMIDE [Concomitant]
  4. ATENOLOL [Concomitant]
  5. BOI-K ASPARTICO [Concomitant]
  6. MIRAPEXIN [Suspect]
     Route: 048
     Dates: start: 2008

REACTIONS (2)
  - Pathological gambling [None]
  - Impulse-control disorder [None]
